FAERS Safety Report 8432801-7 (Version None)
Quarter: 2012Q2

REPORT INFORMATION
  Report Type: 
  Country: None (occurrence: None)
  Receive Date: 20120323
  Receipt Date: 20110921
  Transmission Date: 20120825
  Serious: Yes (Hospitalization, Disabling)
  Sender: FDA-Public Use
  Company Number: 163-21880-11071597

PATIENT
  Age: 79 Year
  Sex: Male

DRUGS (4)
  1. MELPHALAN HYDROCHLORIDE [Concomitant]
  2. REVLIMID [Suspect]
     Indication: MULTIPLE MYELOMA
     Dosage: 20 MG, QDAY X 21 DAYS, PO
     Route: 048
     Dates: start: 20110410, end: 20110819
  3. VELCADE [Concomitant]
  4. ZOMETA [Concomitant]

REACTIONS (1)
  - PANCYTOPENIA [None]
